FAERS Safety Report 9721889 (Version 3)
Quarter: 2013Q4

REPORT INFORMATION
  Report Type: Spontaneous
  Country: IT (occurrence: IT)
  Receive Date: 20131201
  Receipt Date: 20131231
  Transmission Date: 20140711
  Serious: Yes (Hospitalization)
  Sender: FDA-Public Use
  Company Number: IT-BRISTOL-MYERS SQUIBB COMPANY-19839273

PATIENT
  Age: 87 Year
  Sex: Female

DRUGS (6)
  1. COUMADIN TABS 5 MG [Suspect]
     Indication: ATRIAL FIBRILLATION
     Dosage: 1DF= 1 UNIT NOS.?TABS.?INTERRUPTED ON:16JUL13.
     Route: 048
     Dates: start: 20110703
  2. BISOPROLOL HEMIFUMARATE [Interacting]
     Indication: HYPERTENSIVE HEART DISEASE
     Route: 048
     Dates: start: 20110927, end: 20130716
  3. LANOXIN [Interacting]
     Indication: HYPERTENSIVE HEART DISEASE
     Dosage: 0.125 MG TABS
     Route: 048
     Dates: start: 20110101, end: 20130716
  4. FUROSEMIDE [Concomitant]
     Route: 048
  5. PRITOR [Concomitant]
     Dosage: 40 MG TABS
     Route: 048
  6. PANTORC [Concomitant]
     Dosage: 40 MG TABS
     Route: 048

REACTIONS (7)
  - Bradycardia [Recovered/Resolved]
  - Arrhythmia [Recovered/Resolved]
  - Asthenia [Recovered/Resolved]
  - International normalised ratio increased [Recovered/Resolved]
  - Thrombocytopenia [Recovered/Resolved]
  - Toxicity to various agents [Recovered/Resolved]
  - Drug interaction [Unknown]
